FAERS Safety Report 15427098 (Version 1)
Quarter: 2018Q3

REPORT INFORMATION
  Report Type: Spontaneous
  Country: US (occurrence: US)
  Receive Date: 20180925
  Receipt Date: 20180925
  Transmission Date: 20181010
  Serious: No
  Sender: FDA-Public Use
  Company Number: US-INDIVIOR LIMITED-INDV-109881-2018

PATIENT
  Age: 42 Year
  Sex: Male

DRUGS (2)
  1. SUBOXONE [Suspect]
     Active Substance: BUPRENORPHINE HYDROCHLORIDE\NALOXONE HYDROCHLORIDE
     Indication: DRUG DEPENDENCE
     Dosage: 8MG AS NEEDED, UNK
     Route: 065
     Dates: start: 201803, end: 201803
  2. SUBOXONE [Suspect]
     Active Substance: BUPRENORPHINE HYDROCHLORIDE\NALOXONE HYDROCHLORIDE
     Dosage: CUTTING, TAKING QUATER OF 8MG FILM, UNK
     Route: 065
     Dates: start: 201803

REACTIONS (7)
  - Dysuria [Unknown]
  - Feeling abnormal [Unknown]
  - Disturbance in attention [Unknown]
  - Wrong technique in product usage process [Unknown]
  - Somnolence [Unknown]
  - Aphasia [Unknown]
  - Nausea [Unknown]

NARRATIVE: CASE EVENT DATE: 201803
